FAERS Safety Report 7818520-6 (Version None)
Quarter: 2011Q4

REPORT INFORMATION
  Report Type: 
  Country: None (occurrence: None)
  Receive Date: 20111017
  Receipt Date: 20111011
  Transmission Date: 20120403
  Serious: Yes (Hospitalization, Disabling, Other)
  Sender: FDA-Public Use
  Company Number: US-MERCK-1109USA01911

PATIENT
  Age: 54 Year
  Sex: Female
  Weight: 47 kg

DRUGS (6)
  1. FOSAMAX [Suspect]
     Route: 048
     Dates: start: 20000101, end: 20100101
  2. FOSAMAX [Suspect]
     Route: 048
     Dates: start: 20000101, end: 20100101
  3. FOSAMAX [Suspect]
     Route: 048
     Dates: start: 20000101, end: 20100101
  4. FOSAMAX [Suspect]
     Indication: OSTEOPENIA
     Route: 048
     Dates: start: 20000101, end: 20100101
  5. FOSAMAX [Suspect]
     Indication: OSTEOPOROSIS
     Route: 048
     Dates: start: 20000101, end: 20100101
  6. FOSAMAX [Suspect]
     Route: 048
     Dates: start: 20000101, end: 20100101

REACTIONS (20)
  - HAEMORRHAGIC ANAEMIA [None]
  - GALLBLADDER DISORDER [None]
  - BACK PAIN [None]
  - TOOTH DISORDER [None]
  - OSTEOPOROSIS [None]
  - OVARIAN DISORDER [None]
  - ROAD TRAFFIC ACCIDENT [None]
  - SPINAL OSTEOARTHRITIS [None]
  - MUSCULAR WEAKNESS [None]
  - CHEST PAIN [None]
  - FEMUR FRACTURE [None]
  - ANXIETY [None]
  - PAIN IN EXTREMITY [None]
  - CYST [None]
  - FALL [None]
  - HYPERLIPIDAEMIA [None]
  - MUSCLE STRAIN [None]
  - RHINORRHOEA [None]
  - LOW TURNOVER OSTEOPATHY [None]
  - CHRONIC OBSTRUCTIVE PULMONARY DISEASE [None]
